FAERS Safety Report 13324998 (Version 1)
Quarter: 2017Q1

REPORT INFORMATION
  Report Type: Spontaneous
  Country: GB (occurrence: GB)
  Receive Date: 20170310
  Receipt Date: 20170310
  Transmission Date: 20170428
  Serious: Yes (Other)
  Sender: FDA-Public Use
  Company Number: GB-BAUSCH-BL-2017-005898

PATIENT
  Sex: Male

DRUGS (1)
  1. TIMOLOL MALEATE. [Suspect]
     Active Substance: TIMOLOL MALEATE
     Indication: PRODUCT USED FOR UNKNOWN INDICATION
     Route: 047
     Dates: start: 201611, end: 201702

REACTIONS (5)
  - Eczema [Unknown]
  - Expired product administered [Unknown]
  - Drug dispensing error [Unknown]
  - Photophobia [Unknown]
  - Migraine [Unknown]
